FAERS Safety Report 7935582-6 (Version None)
Quarter: 2011Q4

REPORT INFORMATION
  Report Type: 
  Country: None (occurrence: None)
  Receive Date: 20111123
  Receipt Date: 20111117
  Transmission Date: 20120403
  Serious: Yes (Other)
  Sender: FDA-Public Use
  Company Number: US-BIOGENIDEC-2011BI034209

PATIENT
  Age: 37 Year
  Sex: Female

DRUGS (15)
  1. SEROQUEL [Concomitant]
     Route: 048
  2. TEMAZEPAM [Concomitant]
     Route: 048
  3. TIZANIDINE HCL [Concomitant]
     Route: 048
  4. ACETAMINOPHEN [Concomitant]
     Indication: PAIN
     Route: 048
  5. METHYLPHENIDATE [Concomitant]
     Indication: FATIGUE
     Route: 048
  6. IBUPROFEN [Concomitant]
     Indication: HEADACHE
  7. TYSABRI [Suspect]
     Indication: MULTIPLE SCLEROSIS
     Route: 042
     Dates: start: 20080806
  8. HYDROCODONE BITARTRATE [Concomitant]
     Indication: PAIN
     Route: 048
  9. HYDROCODONE BITARTRATE [Concomitant]
     Indication: HEADACHE
     Route: 048
  10. CYMBALTA [Concomitant]
     Route: 048
  11. TRAZODONE HCL [Concomitant]
     Route: 048
  12. ACETAMINOPHEN [Concomitant]
     Route: 048
  13. LUNESTA [Concomitant]
     Route: 048
  14. SEROQUEL [Concomitant]
     Route: 048
  15. NITROFURANTOIN MACROCRYSTAL [Concomitant]
     Route: 048

REACTIONS (6)
  - MEMORY IMPAIRMENT [None]
  - DEPRESSION [None]
  - BLOOD GLUCOSE INCREASED [None]
  - WEIGHT DECREASED [None]
  - MULTIPLE SCLEROSIS RELAPSE [None]
  - PROGRESSIVE MULTIFOCAL LEUKOENCEPHALOPATHY [None]
